FAERS Safety Report 20575728 (Version 2)
Quarter: 2022Q1

REPORT INFORMATION
  Report Type: Spontaneous
  Country: DE (occurrence: DE)
  Receive Date: 20220310
  Receipt Date: 20220322
  Transmission Date: 20220423
  Serious: No
  Sender: FDA-Public Use
  Company Number: DE-LUPIN PHARMACEUTICALS INC.-2022-03169

PATIENT
  Age: 79 Year
  Sex: Male

DRUGS (2)
  1. NITOMAN [Suspect]
     Active Substance: TETRABENAZINE
     Indication: Chorea
     Dosage: 5 DOSAGE FORM, QD
     Route: 048
     Dates: start: 202111
  2. QUETIAPINE [Concomitant]
     Active Substance: QUETIAPINE
     Indication: Product used for unknown indication
     Dosage: UNK
     Route: 065

REACTIONS (1)
  - Off label use [Unknown]
